FAERS Safety Report 7245366-2 (Version None)
Quarter: 2011Q1

REPORT INFORMATION
  Report Type: 
  Country: None (occurrence: None)
  Receive Date: 20110126
  Receipt Date: 20110121
  Transmission Date: 20110831
  Serious: Yes (Hospitalization)
  Sender: FDA-Public Use
  Company Number: CO-ROCHE-754814

PATIENT
  Sex: Male

DRUGS (5)
  1. MIRCERA [Suspect]
     Route: 058
     Dates: start: 20100613
  2. METOPROLOL [Concomitant]
     Dosage: FREQUENCY QD.
     Route: 048
  3. AMLODIPINO [Concomitant]
     Dosage: FREQUENCY QD.
     Route: 048
  4. CALCIO [Concomitant]
     Dosage: FREQUENCY QD.
     Route: 048
  5. INSULINA [Concomitant]
     Indication: DIABETES MELLITUS
     Dosage: FREQUENCY QD.
     Route: 058

REACTIONS (1)
  - INFECTION [None]
